FAERS Safety Report 14302027 (Version 2)
Quarter: 2018Q4

REPORT INFORMATION
  Report Type: Spontaneous
  Country: ES (occurrence: ES)
  Receive Date: 20171219
  Receipt Date: 20181010
  Transmission Date: 20190204
  Serious: Yes (Hospitalization, Other)
  Sender: FDA-Public Use
  Company Number: ES-AUROBINDO-AUR-APL-2017-45388

PATIENT
  Sex: Female
  Weight: 69 kg

DRUGS (20)
  1. DULOXETINE. [Suspect]
     Active Substance: DULOXETINE
     Indication: PAIN
     Dosage: 1 DF, EVERY MORNING(ONCE A DAY)
     Route: 065
  2. RELVAR [Concomitant]
     Active Substance: FLUTICASONE FUROATE\VILANTEROL TRIFENATATE
     Indication: SARCOIDOSIS
  3. ACFOL [Concomitant]
     Active Substance: FOLIC ACID
     Indication: FOLATE DEFICIENCY
     Dosage: 1 DF, DAILY (EACH 24 HOURS)
     Route: 065
  4. OPTOVITE B12 [Concomitant]
     Active Substance: CYANOCOBALAMIN
     Indication: VITAMIN B12 DEFICIENCY
     Dosage: 1 DF, OTHER (EACH 15 DAYS)
     Route: 065
  5. LYRICA [Concomitant]
     Active Substance: PREGABALIN
     Indication: PAIN
     Dosage: 1 DF, (EACH 12 HOURS)
     Route: 065
  6. LORAZEPAM. [Concomitant]
     Active Substance: LORAZEPAM
     Indication: MUSCLE RELAXANT THERAPY
     Dosage: 1 DF, EACH EVENING (EACH 24 HOURS)
     Route: 065
  7. TERIPARATIDE [Suspect]
     Active Substance: TERIPARATIDE
     Indication: OSTEOPOROSIS
     Dosage: 20 UG, DAILY
     Route: 058
  8. MASTICAL D [Concomitant]
     Indication: OSTEOPOROSIS
     Dosage: 1 DF, EACH MORNING (EACH 24 HOURS)
     Route: 065
  9. ATORVASTATINA [Concomitant]
     Active Substance: ATORVASTATIN
     Indication: HYPERCHOLESTEROLAEMIA
     Dosage: 1 DF, EACH EVENING (EACH 24 HOURS)
     Route: 065
  10. DULOXETINE. [Suspect]
     Active Substance: DULOXETINE
     Indication: RELAXATION THERAPY
  11. TERIPARATIDE [Suspect]
     Active Substance: TERIPARATIDE
     Dosage: 20 UG, DAILY
     Route: 058
     Dates: start: 201505
  12. PLANTAGO SPP. HERB [Concomitant]
     Indication: CONSTIPATION
     Dosage: 1 DF, DAILY (SACHETS, EACH 24 HOURS IF REQUIRED)
     Route: 065
  13. RELVAR [Concomitant]
     Active Substance: FLUTICASONE FUROATE\VILANTEROL TRIFENATATE
     Indication: LUNG DISORDER
     Dosage: 1 DF, EACH EVENING (EACH 24 HOURS)
     Route: 065
  14. HIDROFEROL [Concomitant]
     Active Substance: CALCIFEDIOL
     Indication: VITAMIN D INCREASED
     Dosage: 1 DF, WEEKLY (1/W) (AMPOULS)
     Route: 065
  15. KENTERA [Concomitant]
     Active Substance: OXYBUTYNIN
     Indication: URINARY INCONTINENCE
     Dosage: 1 DF, OTHER (EACH 3 DAYS)
     Route: 065
  16. PARACETAMOL [Concomitant]
     Active Substance: ACETAMINOPHEN
     Indication: PAIN
     Dosage: 1 DF, (EACH 8 HOURS)
     Route: 065
  17. NOLOTIL                            /00473101/ [Concomitant]
     Active Substance: METAMIZOLE\PROPOXYPHENE
     Indication: PAIN
     Dosage: 1 DF, (EACH 8 HOURS)
     Route: 065
  18. ADIRO [Concomitant]
     Active Substance: ASPIRIN
     Indication: CARDIAC DISORDER
     Dosage: 1 DF, DAILY (EACH 24 HOURS)
     Route: 065
  19. LANZOPRAZOL [Concomitant]
     Active Substance: LANSOPRAZOLE
     Indication: GASTROINTESTINAL DISORDER
     Dosage: 1 DF, (EACH 12 HOURS)
     Route: 065
  20. LYRICA [Concomitant]
     Active Substance: PREGABALIN
     Indication: MYOKYMIA

REACTIONS (29)
  - Cerebrovascular accident [Unknown]
  - Hypotension [Unknown]
  - Arthralgia [Recovered/Resolved]
  - Nerve compression [Recovered/Resolved]
  - Angina unstable [Unknown]
  - Post-traumatic neck syndrome [Recovered/Resolved]
  - Fatigue [Unknown]
  - Incorrect product administration duration [Unknown]
  - Mitral valve disease [Unknown]
  - Atrophy [Not Recovered/Not Resolved]
  - Pain [Unknown]
  - Aphasia [Recovered/Resolved]
  - Paralysis [Recovered/Resolved]
  - Wolff-Parkinson-White syndrome [Unknown]
  - Chest pain [Recovered/Resolved]
  - Head discomfort [Recovered/Resolved]
  - Movement disorder [Recovered/Resolved]
  - Supraventricular tachycardia [Recovering/Resolving]
  - Muscular weakness [Recovering/Resolving]
  - Limb discomfort [Recovered/Resolved]
  - Sarcoidosis [Recovered/Resolved]
  - Sleep disorder [Recovered/Resolved]
  - Blood pressure increased [Unknown]
  - Acute myocardial infarction [Recovered/Resolved]
  - Alveolar lung disease [Unknown]
  - Blood test abnormal [Recovered/Resolved]
  - Injection site pain [Not Recovered/Not Resolved]
  - Angina pectoris [Unknown]
  - Pain in extremity [Recovered/Resolved]

NARRATIVE: CASE EVENT DATE: 2015
